FAERS Safety Report 4370412-3 (Version None)
Quarter: 2004Q2

REPORT INFORMATION
  Report Type: 
  Country: None (occurrence: None)
  Receive Date: 20040603
  Receipt Date: 20040203
  Transmission Date: 20050107
  Serious: No
  Sender: FDA-Public Use
  Company Number: US-BRISTOL-MYERS SQUIBB COMPANY-12496519

PATIENT

DRUGS (2)
  1. ABILIFY [Suspect]
  2. NEUROLEPTIC AGENT [Concomitant]

REACTIONS (1)
  - EXTRAPYRAMIDAL DISORDER [None]
